FAERS Safety Report 4315577-4 (Version None)
Quarter: 2004Q1

REPORT INFORMATION
  Report Type: 
  Country: None (occurrence: None)
  Receive Date: 20040310
  Receipt Date: 20040225
  Transmission Date: 20041129
  Serious: Yes (Death, Hospitalization)
  Sender: FDA-Public Use
  Company Number: US-JNJFOC-20031005287

PATIENT
  Age: 52 Year
  Sex: Male

DRUGS (14)
  1. DURAGESIC [Suspect]
     Indication: PAIN
     Dosage: 50 UG/HR, 1 IN 72 HOUR, TRANSDERMAL
     Route: 062
     Dates: start: 20030815, end: 20030819
  2. PREVACID (CAPSULES) LANSOPRAZOLE [Concomitant]
  3. AMBIEN (TABLETS) ZOLPIDEM TARTRATE [Concomitant]
  4. KLONOPIN [Concomitant]
  5. LEXIPRO (SSRI) [Concomitant]
  6. TRILEPTAL [Concomitant]
  7. GABITRIL [Concomitant]
  8. NEURONTIN [Concomitant]
  9. ELAVIL [Concomitant]
  10. BEXTRA [Concomitant]
  11. AMITRIPTYLINE HCL [Concomitant]
  12. ADVAIR (SERETIDE MITE) [Concomitant]
  13. FLONASE [Concomitant]
  14. SOMA [Concomitant]

REACTIONS (10)
  - BRONCHITIS ACUTE [None]
  - CONFUSIONAL STATE [None]
  - COUGH [None]
  - HAEMOPTYSIS [None]
  - MULTIPLE DRUG OVERDOSE [None]
  - OXYGEN SATURATION DECREASED [None]
  - PHARMACEUTICAL PRODUCT COMPLAINT [None]
  - RESPIRATORY DEPRESSION [None]
  - RESPIRATORY FAILURE [None]
  - SOMNOLENCE [None]
